FAERS Safety Report 5392359-6 (Version None)
Quarter: 2007Q3

REPORT INFORMATION
  Report Type: 
  Country: None (occurrence: None)
  Receive Date: 20070720
  Receipt Date: 20070717
  Transmission Date: 20080115
  Serious: Yes (Other)
  Sender: FDA-Public Use
  Company Number: A0649096A

PATIENT
  Age: 62 Year
  Sex: Female
  Weight: 86.4 kg

DRUGS (5)
  1. WELLBUTRIN XL [Suspect]
     Indication: DEPRESSION
     Dosage: 450MG PER DAY
     Route: 048
     Dates: start: 20031001
  2. WELLBUTRIN SR [Suspect]
     Indication: DEPRESSION
     Dosage: 150MG TWICE PER DAY
     Route: 048
     Dates: start: 19990101, end: 20031001
  3. CYMBALTA [Concomitant]
     Indication: DEPRESSION
     Dosage: 60MG PER DAY
     Route: 048
     Dates: start: 20041027
  4. EFFEXOR XR [Concomitant]
     Indication: DEPRESSION
     Route: 048
     Dates: start: 19991126, end: 20041001
  5. PROVIGIL [Concomitant]
     Indication: DEPRESSION
     Dosage: 100MG TWICE PER DAY
     Route: 048
     Dates: start: 20021201, end: 20030101

REACTIONS (1)
  - BARRETT'S OESOPHAGUS [None]
